FAERS Safety Report 8420396-3 (Version None)
Quarter: 2012Q2

REPORT INFORMATION
  Report Type: 
  Country: None (occurrence: None)
  Receive Date: 20120607
  Receipt Date: 20120531
  Transmission Date: 20120825
  Serious: Yes (Hospitalization)
  Sender: FDA-Public Use
  Company Number: JP-MERCK-1206USA00397

PATIENT
  Age: 27 Day
  Sex: Male

DRUGS (2)
  1. HYDROCORTONE [Suspect]
     Route: 048
  2. DECADRON [Suspect]
     Route: 048

REACTIONS (1)
  - PNEUMONIA STAPHYLOCOCCAL [None]
